FAERS Safety Report 4578752-X (Version None)
Quarter: 2005Q1

REPORT INFORMATION
  Report Type: 
  Country: None (occurrence: None)
  Receive Date: 20050209
  Receipt Date: 20050209
  Transmission Date: 20050727
  Serious: Yes (Life-Threatening, Hospitalization)
  Sender: FDA-Public Use
  Company Number: None

PATIENT
  Age: 75 Year
  Sex: Female
  Weight: 90.7194 kg

DRUGS (1)
  1. FLAGYL [Suspect]
     Indication: INFECTION PROPHYLAXIS
     Dosage: IV AND PO
     Route: 048
     Dates: start: 20040504, end: 20040606

REACTIONS (5)
  - ATRIAL FIBRILLATION [None]
  - CLOSTRIDIUM COLITIS [None]
  - DEHYDRATION [None]
  - ELECTROLYTE IMBALANCE [None]
  - RASH ERYTHEMATOUS [None]
